FAERS Safety Report 17287388 (Version 1)
Quarter: 2020Q1

REPORT INFORMATION
  Report Type: Spontaneous
  Country: FR (occurrence: FR)
  Receive Date: 20200120
  Receipt Date: 20200120
  Transmission Date: 20200409
  Serious: Yes (Other)
  Sender: FDA-Public Use
  Company Number: FR-TEVA-2020-FR-1169115

PATIENT
  Age: 75 Year
  Sex: Male

DRUGS (9)
  1. LAROXYL 25 MG, COMPRIM? PELLICUL? [Suspect]
     Active Substance: AMITRIPTYLINE HYDROCHLORIDE
     Indication: PAIN
     Dosage: 25 MG; 0-0-1
     Route: 048
     Dates: start: 20191102, end: 20191108
  2. LAROXYL 25 MG, COMPRIM? PELLICUL? [Suspect]
     Active Substance: AMITRIPTYLINE HYDROCHLORIDE
     Dosage: 25 MILLIGRAM DAILY; 25 MG; 0-0-1
     Route: 048
     Dates: start: 20191025, end: 20191028
  3. VANCOMYCINE SANDOZ [Concomitant]
     Active Substance: VANCOMYCIN
     Indication: INFECTION
     Dosage: 250 MG
     Route: 042
     Dates: start: 20191008, end: 20191010
  4. GABAPENTINE [Suspect]
     Active Substance: GABAPENTIN
     Indication: PAIN
     Dosage: / 10/2019: 2400 MG / D, 30/10/2019: 900 MG / D, 05/11/2019: 1800 MG / D
     Route: 048
  5. CEFAZOLINE PANPHARMA [Concomitant]
     Active Substance: CEFAZOLIN SODIUM
     Indication: INFECTION
     Dosage: 4 G
     Route: 042
     Dates: start: 20191010, end: 20191031
  6. EFFEXOR [Interacting]
     Active Substance: VENLAFAXINE HYDROCHLORIDE
     Indication: PAIN
     Dosage: 300 MILLIGRAM DAILY; 1-0-1
     Route: 048
  7. GENTAMICINE PANPHARMA [Concomitant]
     Active Substance: GENTAMICIN
     Indication: INFECTION
     Dosage: 300 MG
     Route: 042
     Dates: start: 20191008, end: 20191008
  8. SKENAN [Interacting]
     Active Substance: MORPHINE SULFATE
     Indication: PAIN
     Dosage: 20 MG; 1-0-1
     Route: 048
  9. TAZOCILLINE 4 G/500 MG, POUDRE POUR SOLUTION POUR PERFUSION [Concomitant]
     Active Substance: PIPERACILLIN SODIUM\TAZOBACTAM SODIUM
     Indication: INFECTION
     Dosage: 1 BOTTLE 3 / DAY; 3 DF; 4 G / 500 MG
     Route: 042
     Dates: start: 20191008, end: 20191010

REACTIONS (2)
  - Drug interaction [Unknown]
  - Confusional state [Recovered/Resolved]

NARRATIVE: CASE EVENT DATE: 20191028
